FAERS Safety Report 6167990-0 (Version None)
Quarter: 2009Q2

REPORT INFORMATION
  Report Type: 
  Country: None (occurrence: None)
  Receive Date: 20090427
  Receipt Date: 20090417
  Transmission Date: 20091009
  Serious: Yes (Hospitalization)
  Sender: FDA-Public Use
  Company Number: US-ROCHE-627881

PATIENT
  Sex: Female
  Weight: 65.8 kg

DRUGS (1)
  1. CAPECITABINE [Suspect]
     Indication: COLORECTAL CANCER
     Route: 048
     Dates: start: 20081115, end: 20090314

REACTIONS (3)
  - DIARRHOEA [None]
  - PNEUMONIA ASPIRATION [None]
  - VOMITING [None]
